FAERS Safety Report 8562971-1 (Version None)
Quarter: 2012Q3

REPORT INFORMATION
  Report Type: 
  Country: None (occurrence: None)
  Receive Date: 20120802
  Receipt Date: 20120720
  Transmission Date: 20120928
  Serious: No
  Sender: FDA-Public Use
  Company Number: US-AMGEN-USASP2012045378

PATIENT
  Age: 37 Year
  Sex: Female

DRUGS (1)
  1. ENBREL [Suspect]
     Indication: RHEUMATOID ARTHRITIS
     Dosage: 50 MG, QWK
     Dates: start: 20100301, end: 20120706

REACTIONS (8)
  - PARANASAL SINUS HYPERSECRETION [None]
  - APHONIA [None]
  - NASOPHARYNGITIS [None]
  - SINUS CONGESTION [None]
  - OROPHARYNGEAL PAIN [None]
  - COUGH [None]
  - PYREXIA [None]
  - RHEUMATOID ARTHRITIS [None]
